FAERS Safety Report 8258054-0 (Version None)
Quarter: 2012Q2

REPORT INFORMATION
  Report Type: 
  Country: None (occurrence: None)
  Receive Date: 20120404
  Receipt Date: 20120327
  Transmission Date: 20120825
  Serious: Yes (Hospitalization)
  Sender: FDA-Public Use
  Company Number: US-BAYER-2012-012264

PATIENT
  Age: 14 Year
  Sex: Female

DRUGS (2)
  1. ASPIRIN [Concomitant]
     Dosage: 81 MG OR 325 MG.
  2. YAZ [Suspect]
     Dosage: UNK
     Dates: start: 20060701, end: 20090921

REACTIONS (9)
  - ANHEDONIA [None]
  - DEEP VEIN THROMBOSIS [None]
  - EMOTIONAL DISTRESS [None]
  - PAIN IN EXTREMITY [None]
  - INJURY [None]
  - ANXIETY [None]
  - PHYSICAL DISABILITY [None]
  - OEDEMA PERIPHERAL [None]
  - GENERAL PHYSICAL HEALTH DETERIORATION [None]
